FAERS Safety Report 24338561 (Version 1)
Quarter: 2024Q3

REPORT INFORMATION
  Report Type: Spontaneous
  Country: BR (occurrence: BR)
  Receive Date: 20240919
  Receipt Date: 20240919
  Transmission Date: 20241017
  Serious: Yes (Hospitalization)
  Sender: STRIDES
  Company Number: BR-STRIDES ARCOLAB LIMITED-2024SP011968

PATIENT
  Age: 27 Year
  Sex: Male

DRUGS (10)
  1. TESTOSTERONE [Suspect]
     Active Substance: TESTOSTERONE
     Indication: Muscle hypertrophy
     Dosage: UNK
     Route: 065
  2. STANOZOLOL [Suspect]
     Active Substance: STANOZOLOL
     Indication: Muscle hypertrophy
     Dosage: UNK
     Route: 065
  3. NANDROLONE [Suspect]
     Active Substance: NANDROLONE
     Indication: Muscle hypertrophy
     Dosage: UNK
     Route: 065
  4. OXYMETHOLONE [Suspect]
     Active Substance: OXYMETHOLONE
     Indication: Hypertonia
     Dosage: UNK
     Route: 065
  5. AMLODIPINE [Concomitant]
     Active Substance: AMLODIPINE BESYLATE
     Indication: Hypertension
     Dosage: UNK (MAXIMUM DOSE)
     Route: 065
  6. LOSARTAN [Concomitant]
     Active Substance: LOSARTAN\LOSARTAN POTASSIUM
     Indication: Hypertension
     Dosage: UNK (MAXIMUM DOSE)
     Route: 065
  7. CLONIDINE [Concomitant]
     Active Substance: CLONIDINE
     Indication: Hypertension
     Dosage: UNK (MAXIMUM DOSE)
     Route: 065
  8. VITAMIN E [Concomitant]
     Active Substance: .ALPHA.-TOCOPHEROL
     Indication: Muscle hypertrophy
     Dosage: UNK
     Route: 065
  9. VITAMIN A [Concomitant]
     Active Substance: VITAMIN A
     Indication: Muscle hypertrophy
     Dosage: UNK
     Route: 065
  10. VITAMIN D [Concomitant]
     Active Substance: VITAMIN D NOS
     Indication: Muscle hypertrophy
     Dosage: UNK
     Route: 065

REACTIONS (7)
  - Nephrocalcinosis [Unknown]
  - Hypercalcaemia [Recovered/Resolved]
  - End stage renal disease [Unknown]
  - Facial paralysis [Unknown]
  - Foreign body reaction [Unknown]
  - Drug abuse [Unknown]
  - Off label use [Unknown]
